FAERS Safety Report 8433135-7 (Version None)
Quarter: 2012Q2

REPORT INFORMATION
  Report Type: 
  Country: None (occurrence: None)
  Receive Date: 20120613
  Receipt Date: 20120604
  Transmission Date: 20120825
  Serious: Yes (Hospitalization)
  Sender: FDA-Public Use
  Company Number: FR-ASTRAZENECA-2010SE34848

PATIENT
  Age: 21888 Day
  Sex: Male

DRUGS (4)
  1. PANDEMRIX [Suspect]
     Route: 030
     Dates: start: 20091127, end: 20091127
  2. EZETIMIBE [Suspect]
     Indication: HYPERCHOLESTEROLAEMIA
     Route: 048
  3. TAMSULOSIN HYDROCHLORIDE [Suspect]
     Indication: PROSTATIC ADENOMA
     Route: 048
  4. NEXIUM [Suspect]
     Indication: GASTROOESOPHAGEAL REFLUX DISEASE
     Route: 048

REACTIONS (8)
  - ASTHMA [None]
  - COUGH [None]
  - RESTRICTIVE PULMONARY DISEASE [None]
  - EOSINOPHILIC PNEUMONIA CHRONIC [None]
  - EOSINOPHILIA [None]
  - MANTLE CELL LYMPHOMA [None]
  - DYSPNOEA EXERTIONAL [None]
  - SINUSITIS [None]
